FAERS Safety Report 7686659-4 (Version None)
Quarter: 2011Q3

REPORT INFORMATION
  Report Type: 
  Country: None (occurrence: None)
  Receive Date: 20110816
  Receipt Date: 20110805
  Transmission Date: 20111222
  Serious: Yes (Other)
  Sender: FDA-Public Use
  Company Number: FR-ELI_LILLY_AND_COMPANY-FR201108001832

PATIENT
  Age: 46 Year
  Sex: Female
  Weight: 50 kg

DRUGS (2)
  1. HUMALOG [Suspect]
     Indication: TYPE 1 DIABETES MELLITUS
     Dosage: 22 IU, OTHER
     Route: 058
     Dates: start: 20110624
  2. LANTUS [Concomitant]
     Indication: TYPE 1 DIABETES MELLITUS
     Dosage: 22 IU, OTHER

REACTIONS (4)
  - WRONG DRUG ADMINISTERED [None]
  - INCORRECT DOSE ADMINISTERED [None]
  - CONFUSIONAL STATE [None]
  - MEDICATION ERROR [None]
